FAERS Safety Report 23774167 (Version 1)
Quarter: 2024Q2

REPORT INFORMATION
  Report Type: Spontaneous
  Country: JP (occurrence: JP)
  Receive Date: 20240423
  Receipt Date: 20240423
  Transmission Date: 20240716
  Serious: Yes (Other)
  Sender: FDA-Public Use
  Company Number: JP-MLMSERVICE-20240410-PI020447-00249-1

PATIENT
  Age: 79 Year
  Sex: Female
  Weight: 46 kg

DRUGS (2)
  1. OXALIPLATIN [Suspect]
     Active Substance: OXALIPLATIN
     Indication: Gastric cancer
     Dosage: 80 MG/M2, CYCLIC, DAY 1
  2. TS-1 [Suspect]
     Active Substance: GIMERACIL\OTERACIL POTASSIUM\TEGAFUR
     Indication: Gastric cancer
     Dosage: 100 MG, 1X/DAY
     Route: 048

REACTIONS (1)
  - Myelosuppression [Recovered/Resolved]
